FAERS Safety Report 21323062 (Version 1)
Quarter: 2022Q3

REPORT INFORMATION
  Report Type: Spontaneous
  Country: GB (occurrence: GB)
  Receive Date: 20220912
  Receipt Date: 20220912
  Transmission Date: 20221027
  Serious: Yes (Hospitalization, Other)
  Sender: FDA-Public Use
  Company Number: None

PATIENT
  Age: 71 Year

DRUGS (7)
  1. LENALIDOMIDE [Suspect]
     Active Substance: LENALIDOMIDE
     Indication: Plasma cell myeloma
     Dosage: CYCLE 1
     Route: 048
     Dates: start: 20220325
  2. IXAZOMIB [Concomitant]
     Active Substance: IXAZOMIB
     Indication: Product used for unknown indication
     Dosage: CYCLE 1
     Route: 048
     Dates: start: 20220325
  3. ACYCLOVIR [Concomitant]
     Active Substance: ACYCLOVIR
     Indication: Product used for unknown indication
     Dosage: CYCLE 1
     Route: 048
     Dates: start: 20220325
  4. DALTEPARIN SODIUM [Concomitant]
     Active Substance: DALTEPARIN SODIUM
     Indication: Product used for unknown indication
     Dosage: CYCLE 1,1500 UNIT
     Route: 058
     Dates: start: 20220325
  5. Metoclopramide HC [Concomitant]
     Indication: Product used for unknown indication
     Dosage: PRN
     Route: 048
     Dates: start: 20220325
  6. OMEPRAZOLE [Concomitant]
     Active Substance: OMEPRAZOLE
     Indication: Product used for unknown indication
     Dosage: CYCLE 1
     Route: 048
     Dates: start: 20220325
  7. OMEPRAZOLE [Concomitant]
     Active Substance: OMEPRAZOLE
     Indication: Product used for unknown indication
     Dosage: OM
     Route: 048
     Dates: start: 20220325

REACTIONS (1)
  - Kidney infection [Recovered/Resolved]
